FAERS Safety Report 21076745 (Version 2)
Quarter: 2022Q3

REPORT INFORMATION
  Report Type: Spontaneous
  Country: US (occurrence: US)
  Receive Date: 20220713
  Receipt Date: 20220726
  Transmission Date: 20221027
  Serious: Yes (Other)
  Sender: FDA-Public Use
  Company Number: US-PFIZER INC-202200949903

PATIENT
  Age: 70 Year
  Sex: Male
  Weight: 83.9 kg

DRUGS (1)
  1. PAXLOVID [Suspect]
     Active Substance: NIRMATRELVIR\RITONAVIR
     Indication: COVID-19 treatment
     Dosage: 10 MG, 2X/DAY
     Route: 048
     Dates: start: 20220708, end: 20220711

REACTIONS (4)
  - Loss of consciousness [Recovered/Resolved]
  - Diarrhoea [Recovered/Resolved]
  - Illness [Recovered/Resolved]
  - Incorrect product administration duration [Unknown]

NARRATIVE: CASE EVENT DATE: 20220708
